FAERS Safety Report 5524362-7 (Version None)
Quarter: 2007Q4

REPORT INFORMATION
  Report Type: 
  Country: None (occurrence: None)
  Receive Date: 20071121
  Receipt Date: 20071109
  Transmission Date: 20080405
  Serious: Yes (Other)
  Sender: FDA-Public Use
  Company Number: US-PFIZER INC-2007096219

PATIENT
  Sex: Male

DRUGS (8)
  1. NEURONTIN [Suspect]
     Indication: DIABETIC NEUROPATHY
  2. NEURONTIN [Suspect]
     Indication: RESTLESS LEGS SYNDROME
  3. NEURONTIN [Suspect]
     Indication: HYPOAESTHESIA
  4. GLUCOPHAGE [Suspect]
  5. NIACIN [Suspect]
  6. ZOCOR [Suspect]
  7. PLAVIX [Suspect]
  8. ALL OTHER THERAPEUTIC PRODUCTS [Suspect]

REACTIONS (6)
  - ANGINA PECTORIS [None]
  - BLOOD TRIGLYCERIDES INCREASED [None]
  - CARDIAC OPERATION [None]
  - CHEST DISCOMFORT [None]
  - FEELING ABNORMAL [None]
  - LIMB DISCOMFORT [None]
